FAERS Safety Report 20156464 (Version 3)
Quarter: 2023Q2

REPORT INFORMATION
  Report Type: Report from Study
  Country: US (occurrence: US)
  Receive Date: 20211207
  Receipt Date: 20230623
  Transmission Date: 20230722
  Serious: Yes (Hospitalization, Other)
  Sender: FDA-Public Use
  Company Number: US-TAKEDA-US-001763

PATIENT
  Age: 55 Year
  Sex: Female
  Weight: 97.959 kg

DRUGS (37)
  1. TEDUGLUTIDE [Suspect]
     Active Substance: TEDUGLUTIDE
     Indication: Short-bowel syndrome
     Dosage: 5.1 MILLIGRAM, QD
     Route: 042
     Dates: start: 20140424, end: 20141121
  2. TEDUGLUTIDE [Suspect]
     Active Substance: TEDUGLUTIDE
     Indication: Short-bowel syndrome
     Dosage: 5.1 MILLIGRAM, QD
     Route: 042
     Dates: start: 20140424, end: 20141121
  3. TEDUGLUTIDE [Suspect]
     Active Substance: TEDUGLUTIDE
     Indication: Short-bowel syndrome
     Dosage: 5.1 MILLIGRAM, QD
     Route: 042
     Dates: start: 20140424, end: 20141121
  4. TEDUGLUTIDE [Suspect]
     Active Substance: TEDUGLUTIDE
     Indication: Short-bowel syndrome
     Dosage: 5.1 MILLIGRAM, QD
     Route: 042
     Dates: start: 20140424, end: 20141121
  5. TEDUGLUTIDE [Suspect]
     Active Substance: TEDUGLUTIDE
     Dosage: 5 MILLIGRAM, QD
     Route: 042
     Dates: start: 20150609, end: 20151110
  6. TEDUGLUTIDE [Suspect]
     Active Substance: TEDUGLUTIDE
     Dosage: 5 MILLIGRAM, QD
     Route: 042
     Dates: start: 20150609, end: 20151110
  7. TEDUGLUTIDE [Suspect]
     Active Substance: TEDUGLUTIDE
     Dosage: 5 MILLIGRAM, QD
     Route: 042
     Dates: start: 20150609, end: 20151110
  8. TEDUGLUTIDE [Suspect]
     Active Substance: TEDUGLUTIDE
     Dosage: 5 MILLIGRAM, QD
     Route: 042
     Dates: start: 20150609, end: 20151110
  9. FAMOTIDINE [Concomitant]
     Active Substance: FAMOTIDINE
     Indication: Short-bowel syndrome
     Dosage: 20 MILLIGRAM
     Route: 048
     Dates: start: 201408, end: 20141209
  10. LEVOTHYROXINE [Concomitant]
     Active Substance: LEVOTHYROXINE
     Indication: Hypothyroidism
     Dosage: 150 ?G, 1X/DAY:QD
     Route: 048
     Dates: start: 201107
  11. MORPHINE [Concomitant]
     Active Substance: MORPHINE
     Indication: Prophylaxis
     Dosage: 15 MILLIGRAM
     Route: 048
     Dates: start: 2008
  12. MORPHINE [Concomitant]
     Active Substance: MORPHINE
     Indication: Pain
  13. FENTANYL [Concomitant]
     Active Substance: FENTANYL
     Indication: Pain
     Dosage: 25 MICROGRAM
     Route: 062
     Dates: start: 20140506
  14. GLUCAGON [Concomitant]
     Active Substance: GLUCAGON
     Indication: Diabetes mellitus
     Dosage: 1 MILLIGRAM
     Route: 058
     Dates: start: 20110910
  15. LOPERAMIDE [Concomitant]
     Active Substance: LOPERAMIDE
     Indication: Short-bowel syndrome
     Dosage: 4 MILLIGRAM, QID
     Route: 048
  16. LIDOCAINE [Concomitant]
     Active Substance: LIDOCAINE
     Indication: Pain
     Dosage: 5 DOSAGE FORM, QD
     Route: 062
     Dates: start: 201107
  17. ONDANSETRON [Concomitant]
     Active Substance: ONDANSETRON
     Indication: Short-bowel syndrome
     Dosage: 4 MILLIGRAM
     Route: 048
     Dates: start: 201409
  18. SERTRALINE [Concomitant]
     Active Substance: SERTRALINE HYDROCHLORIDE
     Indication: Depression
     Dosage: 150 MILLIGRAM, QD
     Route: 048
     Dates: start: 200306
  19. ASPIRIN [Concomitant]
     Active Substance: ASPIRIN
     Indication: Prophylaxis
     Dosage: 81 DOSAGE FORM, QD
     Route: 048
     Dates: start: 20050331, end: 20141202
  20. INSULIN LISPRO [Concomitant]
     Active Substance: INSULIN LISPRO
     Indication: Diabetes mellitus
     Dosage: 2 DOSAGE FORM
     Route: 058
     Dates: start: 20131206, end: 20141209
  21. INSULIN LISPRO [Concomitant]
     Active Substance: INSULIN LISPRO
     Dosage: 15 MILLILITER
     Route: 042
     Dates: start: 20131206
  22. ALTEPLASE [Concomitant]
     Active Substance: ALTEPLASE
     Indication: Short-bowel syndrome
     Dosage: 2 MILLIGRAM, QD
     Route: 048
     Dates: start: 20140910, end: 20141209
  23. DICLOFENAC SODIUM [Concomitant]
     Active Substance: DICLOFENAC SODIUM
     Indication: Arthralgia
     Dosage: 1 INTERNATIONAL UNIT
     Route: 061
     Dates: start: 20140106
  24. TRAZODONE [Concomitant]
     Active Substance: TRAZODONE HYDROCHLORIDE
     Indication: Insomnia
     Dosage: 100 MILLIGRAM, QD
     Route: 048
     Dates: start: 20141218
  25. INSULIN ASPART [Concomitant]
     Active Substance: INSULIN ASPART
     Indication: Diabetes mellitus
     Dosage: 15 MILLILITER
     Route: 058
     Dates: start: 20141211
  26. DAPTOMYCIN [Concomitant]
     Active Substance: DAPTOMYCIN
     Indication: Bacteraemia
     Dosage: 500 MICROGRAM, QD
     Route: 058
     Dates: start: 20141212
  27. FLUCONAZOLE [Concomitant]
     Active Substance: FLUCONAZOLE
     Indication: Bacteraemia
     Dosage: 200 MILLILITER, QD
     Route: 042
     Dates: start: 20141212
  28. CYANOCOBALAMIN [Concomitant]
     Active Substance: CYANOCOBALAMIN
     Indication: Short-bowel syndrome
     Dosage: 1000 MICROGRAM
     Route: 058
     Dates: start: 20141028
  29. VANCOMYCIN [Concomitant]
     Active Substance: VANCOMYCIN
     Indication: Bacteraemia
     Dosage: UNK
     Route: 065
  30. ACETAMINOPHEN [Concomitant]
     Active Substance: ACETAMINOPHEN
     Indication: Pain
     Dosage: UNK
     Route: 065
  31. HYDROMORPHONE [Concomitant]
     Active Substance: HYDROMORPHONE
     Indication: Pain
     Dosage: UNK
     Route: 065
  32. HYDROMORPHONE [Concomitant]
     Active Substance: HYDROMORPHONE
     Dosage: 0.5 MILLIGRAM
     Route: 042
     Dates: start: 20201031, end: 20201103
  33. NALOXONE [Concomitant]
     Active Substance: NALOXONE
     Indication: Pain
     Dosage: UNK
     Route: 065
  34. LORAZEPAM [Concomitant]
     Active Substance: LORAZEPAM
     Indication: Anxiety
     Dosage: 1 MILLIGRAM
     Route: 042
     Dates: start: 20201101, end: 20201103
  35. LORAZEPAM [Concomitant]
     Active Substance: LORAZEPAM
     Indication: Agitation
  36. HALOPERIDOL LACTATE [Concomitant]
     Active Substance: HALOPERIDOL LACTATE
     Indication: Agitation
     Dosage: 2 MILLIGRAM
     Route: 042
     Dates: start: 20201029, end: 20201030
  37. DIPHENHYDRAMINE [Concomitant]
     Active Substance: DIPHENHYDRAMINE
     Indication: Antibiotic prophylaxis
     Dosage: 25 MILLIGRAM
     Route: 048
     Dates: start: 20201028, end: 20201028

REACTIONS (1)
  - Ovarian cyst [Recovered/Resolved]

NARRATIVE: CASE EVENT DATE: 20141111
